FAERS Safety Report 20086135 (Version 3)
Quarter: 2024Q3

REPORT INFORMATION
  Report Type: Report from Study
  Country: US (occurrence: US)
  Receive Date: 20211118
  Receipt Date: 20240925
  Transmission Date: 20241017
  Serious: No
  Sender: GLAXOSMITHKLINE
  Company Number: US-GLAXOSMITHKLINE-US2021AMR232163

PATIENT
  Sex: Female

DRUGS (1)
  1. NIRAPARIB [Suspect]
     Active Substance: NIRAPARIB
     Indication: Ovarian cancer
     Dosage: 300 MG, QD
     Route: 048
     Dates: start: 202106

REACTIONS (10)
  - Fatigue [Not Recovered/Not Resolved]
  - Dry mouth [Unknown]
  - Constipation [Unknown]
  - Taste disorder [Recovering/Resolving]
  - Nausea [Recovered/Resolved]
  - Dizziness [Recovered/Resolved]
  - Decreased appetite [Recovered/Resolved]
  - Hypertension [Recovered/Resolved]
  - Anxiety [Unknown]
  - Loss of personal independence in daily activities [Unknown]
